FAERS Safety Report 13082098 (Version 2)
Quarter: 2017Q1

REPORT INFORMATION
  Report Type: Spontaneous
  Country: FR (occurrence: FR)
  Receive Date: 20170103
  Receipt Date: 20170110
  Transmission Date: 20170428
  Serious: Yes (Other)
  Sender: FDA-Public Use
  Company Number: FR-TEVA-723436ROM

PATIENT
  Age: 12 Year
  Sex: Female

DRUGS (7)
  1. PLITICAN [Suspect]
     Active Substance: ALIZAPRIDE HYDROCHLORIDE
     Indication: PROPHYLAXIS OF NAUSEA AND VOMITING
     Dosage: 135 MILLIGRAM DAILY;
     Route: 042
     Dates: start: 20161026
  2. DOXORUBICINE TEVA [Suspect]
     Active Substance: DOXORUBICIN
     Indication: OSTEOSARCOMA
     Dosage: 84 MILLIGRAM DAILY;
     Route: 041
     Dates: start: 20161026, end: 20161026
  3. EMEND [Suspect]
     Active Substance: APREPITANT
     Indication: PROPHYLAXIS OF NAUSEA AND VOMITING
     Dosage: 125 MILLIGRAM DAILY;
     Route: 048
     Dates: start: 20161026, end: 20161026
  4. PLITICAN [Suspect]
     Active Substance: ALIZAPRIDE HYDROCHLORIDE
     Dosage: BY SLOW INTRAVENOUS ROUTE IF NAUSEA OR VOMITING DESPITE ZOPHREN AND CONTINUOUS PLITICAN
     Dates: start: 20161026
  5. DEXAMETHASONE. [Concomitant]
     Active Substance: DEXAMETHASONE
     Indication: PROPHYLAXIS OF NAUSEA AND VOMITING
     Dosage: 16 MILLIGRAM DAILY;
     Route: 042
  6. CISPLATINE MYLAN [Suspect]
     Active Substance: CISPLATIN
     Indication: OSTEOSARCOMA
     Dosage: 56 MILLIGRAM DAILY;
     Route: 041
     Dates: start: 20161026, end: 20161027
  7. ZOPHREN 8 MG/ 4ML [Suspect]
     Active Substance: ONDANSETRON HYDROCHLORIDE
     Indication: PROPHYLAXIS OF NAUSEA AND VOMITING
     Dosage: 16 MILLIGRAM DAILY;
     Route: 042
     Dates: start: 20161026

REACTIONS (3)
  - Hypotension [Recovered/Resolved]
  - Pyrexia [Recovered/Resolved]
  - Chills [Recovered/Resolved]

NARRATIVE: CASE EVENT DATE: 20161027
